FAERS Safety Report 7843575-2 (Version None)
Quarter: 2011Q4

REPORT INFORMATION
  Report Type: 
  Country: None (occurrence: None)
  Receive Date: 20111025
  Receipt Date: 20111019
  Transmission Date: 20120403
  Serious: Yes (Other)
  Sender: FDA-Public Use
  Company Number: US-CELGENEUS-163-21880-11102364

PATIENT
  Sex: Male
  Weight: 96.248 kg

DRUGS (10)
  1. FOLIC ACID [Concomitant]
     Route: 065
  2. CLARITIN [Concomitant]
     Route: 065
     Dates: end: 20110701
  3. REVLIMID [Suspect]
     Dosage: 10 MILLIGRAM
     Route: 048
     Dates: start: 20110401
  4. ACYCLOVIR [Concomitant]
     Route: 065
     Dates: end: 20110701
  5. MULTI-VITAMINS [Concomitant]
     Route: 065
  6. ZOMETA [Concomitant]
     Route: 065
  7. ZYRTEC [Concomitant]
     Route: 065
  8. REVLIMID [Suspect]
     Indication: MULTIPLE MYELOMA
     Dosage: 25 MILLIGRAM
     Route: 048
     Dates: start: 20100501
  9. BACTRIM [Concomitant]
     Route: 065
  10. MAGNESIUM [Concomitant]
     Route: 065

REACTIONS (3)
  - HEPATIC STEATOSIS [None]
  - CHOLELITHIASIS [None]
  - LIVER FUNCTION TEST ABNORMAL [None]
